FAERS Safety Report 20687882 (Version 3)
Quarter: 2022Q2

REPORT INFORMATION
  Report Type: Spontaneous
  Country: US (occurrence: US)
  Receive Date: 20220408
  Receipt Date: 20220624
  Transmission Date: 20220721
  Serious: Yes (Death)
  Sender: FDA-Public Use
  Company Number: US-JNJFOC-20220409386

PATIENT
  Age: 49 Year
  Sex: Male

DRUGS (3)
  1. TREMFYA [Suspect]
     Active Substance: GUSELKUMAB
     Indication: Product used for unknown indication
     Route: 030
  2. TREMFYA [Suspect]
     Active Substance: GUSELKUMAB
     Route: 058
  3. TREMFYA [Suspect]
     Active Substance: GUSELKUMAB

REACTIONS (9)
  - Death [Fatal]
  - Arthralgia [Unknown]
  - Joint swelling [Unknown]
  - Peripheral swelling [Unknown]
  - Joint stiffness [Unknown]
  - Bedridden [Unknown]
  - Product dose omission issue [Unknown]
  - Off label use [Unknown]
  - Incorrect route of product administration [Unknown]
